FAERS Safety Report 23769577 (Version 2)
Quarter: 2024Q2

REPORT INFORMATION
  Report Type: Spontaneous
  Country: FR (occurrence: FR)
  Receive Date: 20240422
  Receipt Date: 20240509
  Transmission Date: 20240716
  Serious: Yes (Death, Other)
  Sender: FDA-Public Use
  Company Number: None

PATIENT
  Age: 72 Year
  Sex: Male
  Weight: 74 kg

DRUGS (8)
  1. METRONIDAZOLE [Suspect]
     Active Substance: METRONIDAZOLE
     Indication: Antibiotic prophylaxis
     Dosage: 2 G ONCE DAILY (DOSAGE TEXT: 2 GRAM)
     Route: 042
     Dates: start: 20210406, end: 20210413
  2. LANSOPRAZOLE [Suspect]
     Active Substance: LANSOPRAZOLE
     Indication: Product used for unknown indication
     Dosage: 15 MG, ONCE DAILY (DOSAGE TEXT: 15 MILLIGRAM)
     Route: 048
     Dates: start: 20210330, end: 20210413
  3. POMALIDOMIDE [Suspect]
     Active Substance: POMALIDOMIDE
     Indication: Plasma cell myeloma
     Dosage: 4 MG AT AN UNSPECIFIED FREQUENCY (DOSAGE TEXT: 4 MILLIGRAM DAY 1 TO DAY 21)
     Route: 048
     Dates: start: 20210330, end: 20210406
  4. PREGABALIN [Suspect]
     Active Substance: PREGABALIN
     Indication: Neuralgia
     Dosage: 600 MG ONCE DAILY (DOSAGE TEXT: 600 MILLIGRAM)
     Route: 048
     Dates: start: 20210331, end: 20210413
  5. SARCLISA [Suspect]
     Active Substance: ISATUXIMAB\ISATUXIMAB-IRFC
     Indication: Plasma cell myeloma
     Dosage: 10 MG/KG AT AN UNSPECIFIED FREQUENCY (DOSAGE TEXT: 10 MILLIGRAM/KILOGRAM)
     Route: 042
     Dates: start: 20210330, end: 20210330
  6. CEFOTAXIME SODIUM [Suspect]
     Active Substance: CEFOTAXIME SODIUM
     Indication: Antibiotic prophylaxis
     Dosage: 6 G ONCE DAILY (DOSAGE TEXT: 6 GRAM)
     Route: 042
     Dates: start: 20210406, end: 20210413
  7. BACTRIM [Concomitant]
     Active Substance: SULFAMETHOXAZOLE\TRIMETHOPRIM
     Indication: Prophylaxis
     Dosage: 1 DOSAGE FORM IN 2 DAYS (DOSAGE TEXT: 1 DOSAGE FORM) (DOSAGE FORM: AMP IM)
     Route: 048
     Dates: start: 20210330, end: 20210413
  8. VALACYCLOVIR [Concomitant]
     Active Substance: VALACYCLOVIR HYDROCHLORIDE
     Dosage: 1000 MG ONCE DAILY (DOSAGE TEXT: 1000 MILLIGRAM)
     Route: 048
     Dates: start: 20210330, end: 20210413

REACTIONS (2)
  - Death [Fatal]
  - Neutropenia [Not Recovered/Not Resolved]

NARRATIVE: CASE EVENT DATE: 20210413
